FAERS Safety Report 15894719 (Version 1)
Quarter: 2019Q1

REPORT INFORMATION
  Report Type: Spontaneous
  Country: US (occurrence: US)
  Receive Date: 20190131
  Receipt Date: 20190131
  Transmission Date: 20190417
  Serious: No
  Sender: FDA-Public Use
  Company Number: US-PFIZER INC-2019035434

PATIENT
  Sex: Female

DRUGS (4)
  1. B COMPLEX B12 [Concomitant]
     Dosage: UNK
  2. LOSARTAN. [Suspect]
     Active Substance: LOSARTAN
     Indication: CARDIAC FAILURE CONGESTIVE
     Dosage: UNK
  3. METOPROLOL TARTRATE. [Suspect]
     Active Substance: METOPROLOL TARTRATE
     Indication: CARDIAC FAILURE CONGESTIVE
     Dosage: UNK
  4. CALCIUM [Concomitant]
     Active Substance: CALCIUM
     Dosage: UNK

REACTIONS (1)
  - Rash pruritic [Unknown]
